FAERS Safety Report 7897494-6 (Version None)
Quarter: 2011Q4

REPORT INFORMATION
  Report Type: 
  Country: None (occurrence: None)
  Receive Date: 20111107
  Receipt Date: 20111028
  Transmission Date: 20120403
  Serious: Yes (Hospitalization)
  Sender: FDA-Public Use
  Company Number: GB-UCBSA-044571

PATIENT
  Sex: Male
  Weight: 92.2 kg

DRUGS (6)
  1. HYDROXYZINE [Concomitant]
     Dosage: 25 MG
     Route: 048
  2. LORATADINE [Concomitant]
     Dosage: 10 MG
     Route: 048
  3. LEVETIRACETAM [Suspect]
     Indication: CONVULSION
     Route: 048
  4. SIMVASTATIN [Concomitant]
     Dosage: 40 MG
     Route: 048
  5. CLOBAZAM [Concomitant]
     Dosage: 30 MG
     Route: 048
  6. FERROUS FUMARATE [Concomitant]
     Dosage: 10 MG
     Route: 048

REACTIONS (1)
  - DERMATITIS EXFOLIATIVE [None]
